FAERS Safety Report 7223513-6 (Version None)
Quarter: 2011Q1

REPORT INFORMATION
  Report Type: 
  Country: None (occurrence: None)
  Receive Date: 20110112
  Receipt Date: 20100806
  Transmission Date: 20110831
  Serious: No
  Sender: FDA-Public Use
  Company Number: US-ALLERGAN-1010258US

PATIENT
  Sex: Female

DRUGS (2)
  1. SYSTANCE BALANCE [Suspect]
     Indication: DRY EYE
     Dosage: UNK
     Dates: start: 20100805
  2. RESTASIS [Suspect]
     Indication: DRY EYE
     Dosage: 2 GTT, BID
     Route: 047
     Dates: start: 20090101

REACTIONS (3)
  - EYE IRRITATION [None]
  - MIGRAINE [None]
  - HEADACHE [None]
